FAERS Safety Report 21582857 (Version 1)
Quarter: 2022Q4

REPORT INFORMATION
  Report Type: Report from Study
  Country: TR (occurrence: TR)
  Receive Date: 20221111
  Receipt Date: 20221111
  Transmission Date: 20230113
  Serious: Yes (Other)
  Sender: FDA-Public Use
  Company Number: TR-SUN PHARMACEUTICAL INDUSTRIES LTD-2022R1-363218

PATIENT
  Weight: 1.49 kg

DRUGS (2)
  1. FLECAINIDE [Suspect]
     Active Substance: FLECAINIDE
     Indication: Supraventricular tachycardia
     Dosage: 300 MG/DL
     Route: 064
  2. SOTALOL [Suspect]
     Active Substance: SOTALOL
     Indication: Supraventricular tachycardia
     Dosage: 160 MILLIGRAM, BID
     Route: 064

REACTIONS (8)
  - Hydrops foetalis [Unknown]
  - Low birth weight baby [Unknown]
  - Premature baby [Unknown]
  - Wolff-Parkinson-White syndrome congenital [Unknown]
  - Supraventricular tachycardia [Unknown]
  - Arrhythmia [Unknown]
  - Cerebral palsy [Unknown]
  - Foetal exposure during pregnancy [Unknown]
